FAERS Safety Report 21568538 (Version 2)
Quarter: 2022Q4

REPORT INFORMATION
  Report Type: Spontaneous
  Country: US (occurrence: US)
  Receive Date: 20221108
  Receipt Date: 20221121
  Transmission Date: 20230112
  Serious: Yes (Hospitalization, Other)
  Sender: FDA-Public Use
  Company Number: US-INTRA-CELLULAR THERAPIES, INC.-2022ICT01548

PATIENT
  Age: 26 Year
  Sex: Male
  Weight: 151.93 kg

DRUGS (5)
  1. CAPLYTA [Suspect]
     Active Substance: LUMATEPERONE
     Indication: Schizoaffective disorder bipolar type
     Dosage: 21 MG, 1X/DAY
     Route: 048
     Dates: start: 20220819, end: 20220908
  2. CAPLYTA [Suspect]
     Active Substance: LUMATEPERONE
     Indication: Schizoaffective disorder bipolar type
     Dosage: 42 MG, 1X/DAY
     Dates: start: 20220908
  3. VRAYLAR [Suspect]
     Active Substance: CARIPRAZINE
     Dosage: 4.5 UNK
  4. LITHIUM [Suspect]
     Active Substance: LITHIUM
     Dosage: 900 MG, 2X/DAY
  5. JARDIANCE [Concomitant]
     Active Substance: EMPAGLIFLOZIN
     Dosage: 25 MG, 1X/DAY

REACTIONS (5)
  - Hallucination, auditory [Recovering/Resolving]
  - Intentional self-injury [Recovered/Resolved]
  - Emotional distress [Unknown]
  - Schizoaffective disorder bipolar type [Unknown]
  - Off label use [Not Recovered/Not Resolved]

NARRATIVE: CASE EVENT DATE: 20221001
